FAERS Safety Report 6903933-7 (Version None)
Quarter: 2010Q3

REPORT INFORMATION
  Report Type: 
  Country: None (occurrence: None)
  Receive Date: 20100804
  Receipt Date: 20090209
  Transmission Date: 20110219
  Serious: No
  Sender: FDA-Public Use
  Company Number: US-PFIZER INC-2009160084

PATIENT
  Sex: Female
  Weight: 73.9 kg

DRUGS (8)
  1. LYRICA [Suspect]
     Indication: NEUROPATHY PERIPHERAL
     Dosage: 50 MG, 2X/DAY
     Route: 048
     Dates: start: 20081228
  2. NORTRIPTYLINE HCL [Suspect]
     Dosage: UNK
  3. TAXOL [Concomitant]
     Indication: BREAST CANCER
     Dates: start: 20070101
  4. METHADONE HYDROCHLORIDE [Concomitant]
     Dosage: UNK
  5. TYLENOL [Concomitant]
     Dosage: UNK
  6. ATIVAN [Concomitant]
     Dosage: UNK
  7. SYNTHROID [Concomitant]
     Dosage: UNK
  8. EFFEXOR [Concomitant]
     Dosage: UNK

REACTIONS (2)
  - ORAL MUCOSAL EXFOLIATION [None]
  - ORAL PAIN [None]
